FAERS Safety Report 4959389-7 (Version None)
Quarter: 2006Q1

REPORT INFORMATION
  Report Type: 
  Country: None (occurrence: None)
  Receive Date: 20060331
  Receipt Date: 20051123
  Transmission Date: 20060701
  Serious: Yes (Hospitalization, Disabling)
  Sender: FDA-Public Use
  Company Number: US-MERCK-0511USA04003

PATIENT
  Age: 60 Year
  Sex: Male
  Weight: 77 kg

DRUGS (9)
  1. VIOXX [Suspect]
     Indication: OSTEOARTHRITIS
     Route: 048
     Dates: start: 20000101, end: 20020101
  2. VIOXX [Suspect]
     Route: 048
     Dates: start: 20000101, end: 20020101
  3. VIOXX [Suspect]
     Indication: ARTHRALGIA
     Route: 048
     Dates: start: 20000101, end: 20020101
  4. VIOXX [Suspect]
     Route: 048
     Dates: start: 20000101, end: 20020101
  5. AMARYL [Concomitant]
     Indication: DIABETES MELLITUS NON-INSULIN-DEPENDENT
     Route: 065
  6. AMARYL [Concomitant]
     Route: 065
  7. CLARITIN [Concomitant]
     Route: 065
  8. CYANOCOBALAMIN [Concomitant]
     Route: 065
  9. DIOVAN [Concomitant]
     Route: 065
     Dates: start: 20000322

REACTIONS (24)
  - ACUTE CORONARY SYNDROME [None]
  - ACUTE RESPIRATORY FAILURE [None]
  - ANAEMIA [None]
  - ARTERIOSCLEROSIS CORONARY ARTERY [None]
  - BLOOD PRESSURE INCREASED [None]
  - BRADYCARDIA [None]
  - BRONCHITIS [None]
  - CARDIOGENIC SHOCK [None]
  - CORONARY ARTERY DISEASE [None]
  - FATIGUE [None]
  - HIATUS HERNIA [None]
  - HYPERLIPIDAEMIA [None]
  - HYPOACUSIS [None]
  - HYPOTENSION [None]
  - HYPOTHYROIDISM [None]
  - INFECTION [None]
  - MYOCARDIAL INFARCTION [None]
  - NEPHROLITHIASIS [None]
  - PERIPHERAL VASCULAR DISORDER [None]
  - PNEUMONIA [None]
  - PULMONARY OEDEMA [None]
  - RENAL DISORDER [None]
  - REPERFUSION INJURY [None]
  - SINUSITIS [None]
